FAERS Safety Report 7203978-6 (Version None)
Quarter: 2010Q4

REPORT INFORMATION
  Report Type: 
  Country: None (occurrence: None)
  Receive Date: 20101230
  Receipt Date: 20101222
  Transmission Date: 20110411
  Serious: Yes (Hospitalization)
  Sender: FDA-Public Use
  Company Number: GB-PERRIGO-10GB015848

PATIENT
  Age: 23 Year
  Sex: Female

DRUGS (1)
  1. ACETAMINOPHEN SLOW RELEASE [Suspect]
     Dosage: 200 G, SINGLE
     Route: 048

REACTIONS (3)
  - LACTIC ACIDOSIS [None]
  - OVERDOSE [None]
  - UNRESPONSIVE TO STIMULI [None]
